FAERS Safety Report 11999787 (Version 14)
Quarter: 2020Q1

REPORT INFORMATION
  Report Type: Report from Study
  Country: CA (occurrence: CA)
  Receive Date: 20160204
  Receipt Date: 20200303
  Transmission Date: 20200409
  Serious: Yes (Hospitalization, Other)
  Sender: FDA-Public Use
  Company Number: CA-ROCHE-1618751

PATIENT
  Age: 61 Year
  Sex: Male

DRUGS (20)
  1. PERINDOPRIL [Concomitant]
     Active Substance: PERINDOPRIL
     Route: 065
  2. HYDROMORPHONE [Concomitant]
     Active Substance: HYDROMORPHONE
  3. AAS [Concomitant]
     Active Substance: ASPIRIN
  4. PLAQUENIL [Suspect]
     Active Substance: HYDROXYCHLOROQUINE SULFATE
     Indication: PRODUCT USED FOR UNKNOWN INDICATION
     Route: 065
  5. ACETAMINOPHEN. [Concomitant]
     Active Substance: ACETAMINOPHEN
     Route: 048
     Dates: start: 20150805
  6. PREGABALIN. [Concomitant]
     Active Substance: PREGABALIN
  7. FOLIC ACID. [Concomitant]
     Active Substance: FOLIC ACID
  8. CLONAZEPAM. [Concomitant]
     Active Substance: CLONAZEPAM
  9. METHYLPREDNISOLONE. [Concomitant]
     Active Substance: METHYLPREDNISOLONE
     Route: 042
     Dates: start: 20150805
  10. HYDROXYCHLOROQUINE [Concomitant]
     Active Substance: HYDROXYCHLOROQUINE
  11. DOCUSATE [Concomitant]
     Active Substance: DOCUSATE
  12. RITUXAN [Suspect]
     Active Substance: RITUXIMAB
     Route: 042
     Dates: start: 20180328, end: 20180328
  13. ACTONEL [Concomitant]
     Active Substance: RISEDRONATE SODIUM
  14. DIPHENHYDRAMINE HCL [Concomitant]
     Active Substance: DIPHENHYDRAMINE HYDROCHLORIDE
     Route: 048
     Dates: start: 20150805
  15. PREDNISONE. [Concomitant]
     Active Substance: PREDNISONE
  16. METHOTREXATE. [Concomitant]
     Active Substance: METHOTREXATE
  17. RITUXAN [Suspect]
     Active Substance: RITUXIMAB
     Indication: RHEUMATOID ARTHRITIS
     Route: 042
     Dates: start: 20150805
  18. ROSUVASTATIN. [Concomitant]
     Active Substance: ROSUVASTATIN
  19. DEXILANT [Concomitant]
     Active Substance: DEXLANSOPRAZOLE
  20. CALCIUM [Concomitant]
     Active Substance: CALCIUM

REACTIONS (14)
  - Oxygen saturation decreased [Unknown]
  - Pneumonia [Not Recovered/Not Resolved]
  - Pyrexia [Recovered/Resolved]
  - Fatigue [Not Recovered/Not Resolved]
  - White blood cell count decreased [Recovered/Resolved]
  - Infusion related reaction [Recovered/Resolved]
  - Oxygen saturation decreased [Unknown]
  - Nasopharyngitis [Not Recovered/Not Resolved]
  - Fatigue [Recovered/Resolved]
  - Cough [Not Recovered/Not Resolved]
  - Blood pressure increased [Unknown]
  - Pneumonia fungal [Recovered/Resolved]
  - Immune system disorder [Recovered/Resolved]
  - Drug hypersensitivity [Recovered/Resolved]

NARRATIVE: CASE EVENT DATE: 20150805
